FAERS Safety Report 6065380-2 (Version None)
Quarter: 2009Q1

REPORT INFORMATION
  Report Type: 
  Country: None (occurrence: None)
  Receive Date: 20090204
  Receipt Date: 20090129
  Transmission Date: 20090719
  Serious: Yes (Life-Threatening, Hospitalization)
  Sender: FDA-Public Use
  Company Number: UG-GILEAD-2009-0019776

PATIENT
  Age: 35 Year
  Sex: Female
  Weight: 67 kg

DRUGS (6)
  1. EMTRIVA [Suspect]
     Indication: HIV INFECTION
     Dates: start: 20080806
  2. TRUVADA [Suspect]
     Indication: HIV INFECTION
     Dates: start: 20071222, end: 20080806
  3. CETIRIZINE [Concomitant]
  4. ASCORBIC ACID [Concomitant]
  5. NEVIRAPINE [Concomitant]
     Indication: HIV INFECTION
     Dates: start: 20071222
  6. ZIDOVUDINE [Concomitant]
     Indication: HIV INFECTION
     Dates: start: 20080806

REACTIONS (2)
  - INTRA-UTERINE DEATH [None]
  - PRE-ECLAMPSIA [None]
